FAERS Safety Report 10083807 (Version 2)
Quarter: 2014Q2

REPORT INFORMATION
  Report Type: Spontaneous
  Country: CA (occurrence: CA)
  Receive Date: 20140417
  Receipt Date: 20140429
  Transmission Date: 20141212
  Serious: Yes (Hospitalization, Other)
  Sender: FDA-Public Use
  Company Number: CA-AMGEN-CANSP2014027053

PATIENT
  Age: 79 Year
  Sex: Female

DRUGS (1)
  1. ENBREL [Suspect]
     Indication: PSORIATIC ARTHROPATHY
     Dosage: 50 MG, UNK
     Route: 065
     Dates: start: 20120403

REACTIONS (9)
  - Muscle spasms [Recovered/Resolved]
  - Gait disturbance [Recovered/Resolved]
  - Abasia [Recovered/Resolved]
  - Myalgia [Recovered/Resolved]
  - Muscle disorder [Recovered/Resolved]
  - Spinal compression fracture [Recovered/Resolved]
  - Rib fracture [Recovered/Resolved]
  - Fall [Recovered/Resolved]
  - Injection site pain [Recovered/Resolved]
